FAERS Safety Report 9844908 (Version 1)
Quarter: 2014Q1

REPORT INFORMATION
  Report Type: Spontaneous
  Country: US (occurrence: None)
  Receive Date: 20140123
  Receipt Date: 20140123
  Transmission Date: 20141002
  Serious: Yes (Disabling)
  Sender: FDA-Public Use
  Company Number: None

PATIENT
  Age: 37 Year
  Sex: Male
  Weight: 74.84 kg

DRUGS (1)
  1. CIPROFLOXACIN [Suspect]
     Indication: PROSTATITIS
     Route: 048

REACTIONS (8)
  - Tendonitis [None]
  - Cartilage injury [None]
  - Arthritis [None]
  - Visual impairment [None]
  - Photosensitivity reaction [None]
  - Dry eye [None]
  - Tinnitus [None]
  - Rotator cuff syndrome [None]
